FAERS Safety Report 8052820-2 (Version None)
Quarter: 2012Q1

REPORT INFORMATION
  Report Type: 
  Country: None (occurrence: None)
  Receive Date: 20120117
  Receipt Date: 20120117
  Transmission Date: 20120608
  Serious: Yes (Hospitalization)
  Sender: FDA-Public Use
  Company Number: None

PATIENT
  Sex: Female
  Weight: 100 kg

DRUGS (4)
  1. VINCRISTINE SULFATE [Suspect]
     Dosage: 2 MG
  2. CYCLOPHOSPHAMIDE [Suspect]
     Dosage: 1520 MG
  3. DOXORUBICIN HCL [Suspect]
     Dosage: 102 MG
  4. RITUXIMAB (MOAB C2B3 ANTI CD20, CHIMERIC) [Suspect]
     Dosage: 760 MG

REACTIONS (1)
  - ATRIAL FLUTTER [None]
